FAERS Safety Report 23401290 (Version 1)
Quarter: 2024Q1

REPORT INFORMATION
  Report Type: Spontaneous
  Country: US (occurrence: US)
  Receive Date: 20240115
  Receipt Date: 20240115
  Transmission Date: 20240410
  Serious: No
  Sender: FDA-Public Use
  Company Number: US-VIIV HEALTHCARE LIMITED-US2024001883

PATIENT
  Age: 25 Year
  Sex: Male
  Weight: 68.5 kg

DRUGS (7)
  1. TRIUMEQ [Suspect]
     Active Substance: ABACAVIR SULFATE\DOLUTEGRAVIR SODIUM\LAMIVUDINE
     Indication: Product used for unknown indication
     Dosage: UNK UNK, QD
     Dates: start: 20220104, end: 20230901
  2. BICTEGRAVIR\EMTRICITABINE\TENOFOVIR ALAFENAMIDE [Concomitant]
     Active Substance: BICTEGRAVIR\EMTRICITABINE\TENOFOVIR ALAFENAMIDE
     Indication: HIV infection
     Dosage: 1 DF, QD (50-200-25 MG TAB 25 KG OR GREATER; 30 TABLETS, 5 REFILL  )
     Route: 048
  3. INFLUENZA VIRUS VACCINE QUADRIVALENT TYPE A+B [Concomitant]
     Active Substance: INFLUENZA VIRUS VACCINE QUADRIVALENT TYPE A+B
     Indication: Prophylaxis
     Dosage: UNK (PRESERVATIVE FREE )
     Route: 030
     Dates: start: 20180920
  4. INFLUENZA VIRUS VACCINE QUADRIVALENT TYPE A+B [Concomitant]
     Active Substance: INFLUENZA VIRUS VACCINE QUADRIVALENT TYPE A+B
     Dosage: UNK (PRESERVATIVE FREE )
     Route: 030
     Dates: start: 20201215
  5. INFLUENZA VIRUS VACCINE QUADRIVALENT TYPE A+B [Concomitant]
     Active Substance: INFLUENZA VIRUS VACCINE QUADRIVALENT TYPE A+B
     Dosage: UNK (PRESERVATIVE FREE )
     Route: 030
     Dates: start: 20221130
  6. Pneumococcal vaccine conj 20v (CRM197) [Concomitant]
     Indication: Prophylaxis
     Dosage: UNK
     Dates: start: 20231212
  7. AZELASTINE HYDROCHLORIDE AND FLUTICASONE PROPIONATE [Concomitant]
     Active Substance: AZELASTINE HYDROCHLORIDE\FLUTICASONE PROPIONATE
     Indication: Product used for unknown indication
     Dosage: UNK (137-50 MCG/SPRAY)

REACTIONS (3)
  - Abdominal discomfort [Unknown]
  - Drug intolerance [Unknown]
  - Product dose omission issue [Unknown]

NARRATIVE: CASE EVENT DATE: 20220204
